FAERS Safety Report 19065057 (Version 1)
Quarter: 2021Q1

REPORT INFORMATION
  Report Type: Report from Study
  Country: None (occurrence: CA)
  Receive Date: 20210326
  Receipt Date: 20210326
  Transmission Date: 20210420
  Serious: Yes (Other)
  Sender: FDA-Public Use
  Company Number: CA-ABBVIE-20K-028-3709422-00

PATIENT
  Age: 34 Year
  Sex: Female

DRUGS (1)
  1. SKYRIZI [Suspect]
     Active Substance: RISANKIZUMAB-RZAA
     Indication: PSORIASIS
     Route: 058
     Dates: start: 20190816

REACTIONS (9)
  - Choking [Recovered/Resolved]
  - Abortion induced [Unknown]
  - Dyspnoea [Recovered/Resolved]
  - Maternal exposure during pregnancy [Unknown]
  - Condition aggravated [Not Recovered/Not Resolved]
  - Tachycardia [Recovered/Resolved]
  - Stress [Not Recovered/Not Resolved]
  - Swelling face [Recovered/Resolved]
  - Urticaria [Unknown]

NARRATIVE: CASE EVENT DATE: 2021
